FAERS Safety Report 25729529 (Version 2)
Quarter: 2025Q3

REPORT INFORMATION
  Report Type: Spontaneous
  Country: EU (occurrence: EU)
  Receive Date: 20250827
  Receipt Date: 20250912
  Transmission Date: 20251020
  Serious: Yes (Life-Threatening, Other)
  Sender: ROCHE
  Company Number: EU-ROCHE-10000371554

PATIENT
  Age: 23 Year
  Sex: Male

DRUGS (5)
  1. MABTHERA [Suspect]
     Active Substance: RITUXIMAB
     Indication: Nephrotic syndrome
     Route: 065
  2. CELLCEPT [Suspect]
     Active Substance: MYCOPHENOLATE MOFETIL
     Indication: Nephrotic syndrome
     Route: 065
  3. CYCLOSPORINE [Suspect]
     Active Substance: CYCLOSPORINE
     Indication: Portal vein thrombosis
     Route: 042
  4. CYCLOSPORINE [Suspect]
     Active Substance: CYCLOSPORINE
     Route: 048
  5. OBINUTUZUMAB [Concomitant]
     Active Substance: OBINUTUZUMAB
     Route: 065

REACTIONS (7)
  - Laryngospasm [Unknown]
  - Diarrhoea [Unknown]
  - Peritonitis [Unknown]
  - COVID-19 [Recovering/Resolving]
  - Acute respiratory distress syndrome [Recovering/Resolving]
  - Drug hypersensitivity [Unknown]
  - Off label use [Unknown]
